FAERS Safety Report 9216871 (Version 1)
Quarter: 2013Q2

REPORT INFORMATION
  Report Type: Spontaneous
  Country: JP (occurrence: JP)
  Receive Date: 20130408
  Receipt Date: 20130408
  Transmission Date: 20140414
  Serious: Yes (Other)
  Sender: FDA-Public Use
  Company Number: JP-PFIZER INC-2013104695

PATIENT
  Sex: 0

DRUGS (2)
  1. XALKORI [Suspect]
     Indication: LUNG NEOPLASM MALIGNANT
     Dosage: ONE HALF THE STANDARD DOSE
     Route: 048
  2. XALKORI [Suspect]
     Dosage: THE STANDARD DOSE
     Route: 048

REACTIONS (1)
  - Cardiac failure [Unknown]
